FAERS Safety Report 20661782 (Version 2)
Quarter: 2022Q2

REPORT INFORMATION
  Report Type: Report from Study
  Country: IT (occurrence: IT)
  Receive Date: 20220401
  Receipt Date: 20220407
  Transmission Date: 20220721
  Serious: Yes (Hospitalization)
  Sender: FDA-Public Use
  Company Number: None

PATIENT
  Age: 69 Year
  Sex: Male

DRUGS (12)
  1. BISOPROLOL [Suspect]
     Active Substance: BISOPROLOL
     Route: 065
     Dates: start: 20220101, end: 20220219
  2. RAMIPRIL [Concomitant]
     Active Substance: RAMIPRIL
  3. XANAX [Concomitant]
     Active Substance: ALPRAZOLAM
  4. XADAGO [Concomitant]
     Active Substance: SAFINAMIDE MESYLATE
  5. LEVODOPA [Concomitant]
     Active Substance: LEVODOPA
  6. OMEPRAZOLE [Concomitant]
     Active Substance: OMEPRAZOLE
  7. AMLODIPINE [Concomitant]
     Active Substance: AMLODIPINE BESYLATE
  8. PAROXETINE [Concomitant]
     Active Substance: PAROXETINE
  9. FUROSEMIDE [Concomitant]
     Active Substance: FUROSEMIDE
  10. MIRTAZAPINE [Concomitant]
     Active Substance: MIRTAZAPINE
  11. DULOXETINE [Concomitant]
     Active Substance: DULOXETINE
  12. ASPIRIN [Concomitant]
     Active Substance: ASPIRIN

REACTIONS (3)
  - Cardiac arrest [Not Recovered/Not Resolved]
  - Resuscitation [Not Recovered/Not Resolved]
  - Bradycardia [Not Recovered/Not Resolved]

NARRATIVE: CASE EVENT DATE: 20220219
